FAERS Safety Report 25776139 (Version 1)
Quarter: 2025Q3

REPORT INFORMATION
  Report Type: Spontaneous
  Country: US (occurrence: US)
  Receive Date: 20250909
  Receipt Date: 20250909
  Transmission Date: 20251021
  Serious: No
  Sender: DOMPE FARMACEUTICI
  Company Number: US-FARMAPROD-202408-2897

PATIENT
  Age: 78 Year
  Sex: Female

DRUGS (29)
  1. OXERVATE [Suspect]
     Active Substance: CENEGERMIN-BKBJ
     Indication: Neurotrophic keratopathy
     Route: 047
     Dates: start: 20230329, end: 20230514
  2. OXERVATE [Suspect]
     Active Substance: CENEGERMIN-BKBJ
     Route: 047
     Dates: start: 20240718
  3. OXERVATE [Suspect]
     Active Substance: CENEGERMIN-BKBJ
  4. OXERVATE [Suspect]
     Active Substance: CENEGERMIN-BKBJ
  5. OXERVATE [Suspect]
     Active Substance: CENEGERMIN-BKBJ
  6. OXERVATE [Suspect]
     Active Substance: CENEGERMIN-BKBJ
  7. HERBALS\TURMERIC [Concomitant]
     Active Substance: HERBALS\TURMERIC
  8. TEMAZEPAM [Concomitant]
     Active Substance: TEMAZEPAM
  9. PANTOPRAZOLE SODIUM [Concomitant]
     Active Substance: PANTOPRAZOLE SODIUM
  10. MONTELUKAST SODIUM [Concomitant]
     Active Substance: MONTELUKAST SODIUM
  11. MAGNESIUM [Concomitant]
     Active Substance: MAGNESIUM
  12. GABAPENTIN [Concomitant]
     Active Substance: GABAPENTIN
  13. FENOFIBRATE [Concomitant]
     Active Substance: FENOFIBRATE
  14. VITAMIN E [Concomitant]
     Active Substance: .ALPHA.-TOCOPHEROL
  15. VITAMIN D3 [Concomitant]
     Active Substance: CHOLECALCIFEROL
  16. VITAMIN C [Concomitant]
     Active Substance: ASCORBIC ACID
  17. ZINC [Concomitant]
     Active Substance: ZINC
  18. VALACYCLOVIR [Concomitant]
     Active Substance: VALACYCLOVIR HYDROCHLORIDE
  19. PREDNISOLONE-NEPAFENAC [Concomitant]
  20. OXYBUTYNIN CHLORIDE [Concomitant]
     Active Substance: OXYBUTYNIN CHLORIDE
  21. LOSARTAN POTASSIUM [Concomitant]
     Active Substance: LOSARTAN POTASSIUM
  22. LEVOTHYROXINE SODIUM [Concomitant]
     Active Substance: LEVOTHYROXINE SODIUM
  23. LEVOTHYROXINE SODIUM [Concomitant]
     Active Substance: LEVOTHYROXINE SODIUM
  24. SYMBICORT [Concomitant]
     Active Substance: BUDESONIDE\FORMOTEROL FUMARATE DIHYDRATE
  25. SIMBRINZA [Concomitant]
     Active Substance: BRIMONIDINE TARTRATE\BRINZOLAMIDE
  26. DULOXETINE HYDROCHLORIDE [Concomitant]
     Active Substance: DULOXETINE HYDROCHLORIDE
  27. THERATEARS [Concomitant]
     Active Substance: CARBOXYMETHYLCELLULOSE SODIUM
  28. ASPIRIN [Concomitant]
     Active Substance: ASPIRIN
  29. ACYCLOVIR [Concomitant]
     Active Substance: ACYCLOVIR

REACTIONS (2)
  - Product dose omission issue [Recovered/Resolved]
  - Pyrexia [Recovered/Resolved]

NARRATIVE: CASE EVENT DATE: 20240806
